FAERS Safety Report 9172475 (Version 1)
Quarter: 2013Q1

REPORT INFORMATION
  Report Type: Spontaneous
  Country: US (occurrence: US)
  Receive Date: 20130319
  Receipt Date: 20130319
  Transmission Date: 20140127
  Serious: Yes (Hospitalization)
  Sender: FDA-Public Use
  Company Number: US-GILEAD-2013-0071926

PATIENT
  Sex: Male

DRUGS (2)
  1. EMTRIVA [Suspect]
     Indication: HIV INFECTION
     Dosage: UNK
     Dates: start: 20130225
  2. REYATAZ [Interacting]
     Indication: HIV INFECTION

REACTIONS (3)
  - Neutrophilia [Unknown]
  - Night sweats [Unknown]
  - Drug interaction [Unknown]
